FAERS Safety Report 17240851 (Version 2)
Quarter: 2020Q1

REPORT INFORMATION
  Report Type: Spontaneous
  Country: DE (occurrence: DE)
  Receive Date: 20200107
  Receipt Date: 20200110
  Transmission Date: 20200409
  Serious: Yes (Other)
  Sender: FDA-Public Use
  Company Number: DE-ROCHE-2511085

PATIENT
  Sex: Male

DRUGS (1)
  1. SOMATROPIN. [Suspect]
     Active Substance: SOMATROPIN
     Indication: SMALL FOR DATES BABY
     Dosage: 0.04 MG/KG,1 IN 1 D
     Route: 058
     Dates: start: 20101202

REACTIONS (11)
  - Diabetes insipidus [Recovered/Resolved]
  - Enuresis [Not Recovered/Not Resolved]
  - Scarlet fever [Recovered/Resolved]
  - Off label use [Unknown]
  - Urinary retention [Recovered/Resolved]
  - Hyperuricaemia [Not Recovered/Not Resolved]
  - Urinary tract infection [Not Recovered/Not Resolved]
  - Headache [Recovered/Resolved]
  - Paronychia [Recovered/Resolved]
  - Ear pain [Recovered/Resolved]
  - Urine flow decreased [Not Recovered/Not Resolved]

NARRATIVE: CASE EVENT DATE: 201108
